FAERS Safety Report 16347204 (Version 1)
Quarter: 2019Q3

REPORT INFORMATION
  Report Type: Spontaneous
  Country: US (occurrence: US)
  Receive Date: 20190522
  Receipt Date: 20190522
  Transmission Date: 20191004
  Serious: Yes (Other)
  Sender: FDA-Public Use
  Company Number: None

PATIENT
  Age: 56 Year
  Sex: Female
  Weight: 101.7 kg

DRUGS (7)
  1. ZYRTEC [Concomitant]
     Active Substance: CETIRIZINE HYDROCHLORIDE
  2. PROBIOTIC [Concomitant]
     Active Substance: PROBIOTICS NOS
  3. UREA CREAM 40% [Suspect]
     Active Substance: UREA
     Indication: DERMATITIS ATOPIC
     Dosage: ?          QUANTITY:198.4 OUNCE(S);?
     Route: 061
     Dates: start: 20190520, end: 20190521
  4. CLOBETASOL PROPIONATE .05% [Concomitant]
     Active Substance: CLOBETASOL PROPIONATE
  5. WELLBUTRIN [Concomitant]
     Active Substance: BUPROPION HYDROCHLORIDE
  6. MUPIROCIN. [Concomitant]
     Active Substance: MUPIROCIN
  7. TACROLIMUS. [Concomitant]
     Active Substance: TACROLIMUS

REACTIONS (4)
  - Urticaria [None]
  - Vomiting [None]
  - Pain [None]
  - Skin burning sensation [None]

NARRATIVE: CASE EVENT DATE: 20190521
